FAERS Safety Report 19078716 (Version 1)
Quarter: 2021Q1

REPORT INFORMATION
  Report Type: Report from Study
  Country: US (occurrence: US)
  Receive Date: 20210331
  Receipt Date: 20210331
  Transmission Date: 20210420
  Serious: Yes (Other)
  Sender: FDA-Public Use
  Company Number: US-ROCHE-2761414

PATIENT
  Age: 83 Year
  Sex: Male

DRUGS (2)
  1. VEMURAFENIB. [Suspect]
     Active Substance: VEMURAFENIB
     Indication: HAIRY CELL LEUKAEMIA
     Dosage: MOST RECENT DOSE: 27/JUN/2020?ELIGIBLE PATIENTS WILL RECEIVE VEMURAFENIB AT A DOSE OF 960MG ORALLY T
     Route: 048
     Dates: start: 20200302
  2. OBINUTUZUMAB. [Suspect]
     Active Substance: OBINUTUZUMAB
     Indication: HAIRY CELL LEUKAEMIA
     Dosage: MOST RECENT DOSE: 27/JUN/2020?STARTING AT CYCLE 2 OF TREATMENT IN CYCLES OF 4 WEEKS. OBINUTUZUMAB IN
     Route: 042
     Dates: start: 20200302

REACTIONS (1)
  - Prostate cancer [Recovered/Resolved]

NARRATIVE: CASE EVENT DATE: 20201223
